FAERS Safety Report 24446997 (Version 1)
Quarter: 2024Q4

REPORT INFORMATION
  Report Type: Report from Study
  Country: CO (occurrence: CO)
  Receive Date: 20241016
  Receipt Date: 20241016
  Transmission Date: 20250115
  Serious: Yes (Death)
  Sender: UCB
  Company Number: CO-UCBSA-2024052771

PATIENT
  Sex: Male

DRUGS (3)
  1. ROTIGOTINE [Suspect]
     Active Substance: ROTIGOTINE
     Indication: Parkinsonism
     Dosage: UNK
     Dates: start: 20240720, end: 20240727
  2. ROTIGOTINE [Suspect]
     Active Substance: ROTIGOTINE
     Indication: Progressive supranuclear palsy
  3. ROTIGOTINE [Suspect]
     Active Substance: ROTIGOTINE
     Indication: Off label use

REACTIONS (2)
  - Death [Fatal]
  - Off label use [Unknown]

NARRATIVE: CASE EVENT DATE: 20240720
